FAERS Safety Report 7889709-5 (Version None)
Quarter: 2011Q4

REPORT INFORMATION
  Report Type: 
  Country: None (occurrence: None)
  Receive Date: 20111103
  Receipt Date: 20110924
  Transmission Date: 20120403
  Serious: No
  Sender: FDA-Public Use
  Company Number: US-BAYER-2011-092795

PATIENT
  Age: 49 Year
  Sex: Female
  Weight: 73 kg

DRUGS (2)
  1. DOMEBORO [Suspect]
     Indication: ONYCHOCLASIS
     Dosage: UNK
     Route: 061
     Dates: start: 20110801
  2. SENNA-MINT WAF [Concomitant]

REACTIONS (4)
  - LIGAMENT SPRAIN [None]
  - WEIGHT INCREASED [None]
  - PAIN IN EXTREMITY [None]
  - OEDEMA PERIPHERAL [None]
